FAERS Safety Report 11629375 (Version 1)
Quarter: 2015Q4

REPORT INFORMATION
  Report Type: Spontaneous
  Country: FR (occurrence: FR)
  Receive Date: 20151014
  Receipt Date: 20151014
  Transmission Date: 20160304
  Serious: Yes (Other)
  Sender: FDA-Public Use
  Company Number: FR-009507513-1510FRA003495

PATIENT
  Age: 40 Year
  Sex: Female

DRUGS (5)
  1. ZOPHREN (ONDANSETRON HYDROCHLORIDE) [Suspect]
     Active Substance: ONDANSETRON HYDROCHLORIDE
     Dosage: 8 MG, ONCE A DAY
     Route: 048
     Dates: start: 20150323, end: 20150327
  2. TEMODAL [Suspect]
     Active Substance: TEMOZOLOMIDE
     Dosage: 250 MG, ONCE A DAY
     Route: 048
     Dates: start: 20150323, end: 20150327
  3. ZONEGRAN [Concomitant]
     Active Substance: ZONISAMIDE
  4. LYRICA [Concomitant]
     Active Substance: PREGABALIN
  5. LAMICTAL [Concomitant]
     Active Substance: LAMOTRIGINE

REACTIONS (2)
  - Urticaria [Recovered/Resolved]
  - Skin reaction [Recovered/Resolved]

NARRATIVE: CASE EVENT DATE: 20150327
